FAERS Safety Report 5254492-9 (Version None)
Quarter: 2007Q1

REPORT INFORMATION
  Report Type: 
  Country: None (occurrence: None)
  Receive Date: 20061201
  Receipt Date: 20060901
  Transmission Date: 20070707
  Serious: No
  Sender: FDA-Public Use
  Company Number: 2006PV020721

PATIENT
  Age: 51 Year
  Sex: Female
  Weight: 109.7705 kg

DRUGS (5)
  1. BYETTA [Suspect]
     Indication: DIABETES MELLITUS NON-INSULIN-DEPENDENT
     Dosage: 5 MCG;BID;SC
     Route: 058
     Dates: start: 20060901
  2. ACTOS /USA/ [Concomitant]
  3. REGULAR INSULIN [Concomitant]
  4. XANAX [Concomitant]
  5. LEXAPRO [Concomitant]

REACTIONS (3)
  - ANXIETY [None]
  - BLOOD GLUCOSE INCREASED [None]
  - CRYING [None]
